FAERS Safety Report 7320581-8 (Version None)
Quarter: 2011Q1

REPORT INFORMATION
  Report Type: 
  Country: None (occurrence: None)
  Receive Date: 20110228
  Receipt Date: 20110217
  Transmission Date: 20110831
  Serious: Yes (Hospitalization, Other)
  Sender: FDA-Public Use
  Company Number: US-ASTRAZENECA-2010SE12698

PATIENT
  Age: 571 Month
  Sex: Female
  Weight: 83.9 kg

DRUGS (23)
  1. SEROQUEL [Suspect]
     Route: 048
     Dates: end: 20070301
  2. VELCADE [Concomitant]
  3. NEXIUM [Suspect]
     Route: 048
  4. SEROQUEL [Suspect]
     Indication: SCHIZOPHRENIA
     Route: 048
     Dates: start: 20040101
  5. SEROQUEL [Suspect]
     Route: 048
     Dates: end: 20070301
  6. SEROQUEL [Suspect]
     Indication: BIPOLAR DISORDER
     Route: 048
     Dates: start: 20040101
  7. SEROQUEL [Suspect]
     Route: 048
     Dates: end: 20070301
  8. SEROQUEL [Suspect]
     Route: 048
     Dates: end: 20100630
  9. SEROQUEL [Suspect]
     Route: 048
     Dates: start: 20100701
  10. DEXAMETHADONE [Concomitant]
  11. SEROQUEL [Suspect]
     Route: 048
     Dates: end: 20100630
  12. SEROQUEL [Suspect]
     Route: 048
     Dates: start: 20100701
  13. SEROQUEL [Suspect]
     Route: 048
     Dates: start: 20100701
  14. SEROQUEL [Suspect]
     Route: 048
     Dates: start: 20100701
  15. SEROQUEL [Suspect]
     Route: 048
     Dates: end: 20070301
  16. SEROQUEL [Suspect]
     Route: 048
     Dates: end: 20100630
  17. NEXIUM [Suspect]
     Indication: GASTROOESOPHAGEAL REFLUX DISEASE
     Route: 048
     Dates: start: 20060101
  18. KLONAZAPAM [Concomitant]
     Indication: ANXIETY
  19. REVLIMID [Concomitant]
  20. SEROQUEL [Suspect]
     Indication: DEPRESSION
     Route: 048
     Dates: start: 20040101
  21. SEROQUEL [Suspect]
     Indication: PSYCHOTIC DISORDER
     Route: 048
     Dates: start: 20040101
  22. SEROQUEL [Suspect]
     Route: 048
     Dates: end: 20100630
  23. CELEXA [Concomitant]
     Indication: DEPRESSION
     Dosage: DAILY
     Route: 048

REACTIONS (8)
  - LEUKAEMIA [None]
  - THROMBOSIS [None]
  - GASTROOESOPHAGEAL REFLUX DISEASE [None]
  - SUICIDAL IDEATION [None]
  - DEPRESSION [None]
  - DRUG DOSE OMISSION [None]
  - DRUG WITHDRAWAL SYNDROME [None]
  - MEDICATION ERROR [None]
